FAERS Safety Report 23629113 (Version 8)
Quarter: 2025Q4

REPORT INFORMATION
  Report Type: Spontaneous
  Country: JP (occurrence: JP)
  Receive Date: 20240313
  Receipt Date: 20251226
  Transmission Date: 20260118
  Serious: Yes (Death, Hospitalization)
  Sender: EISAI
  Company Number: JP-Eisai-202314979_LEN-RCC_P_1

PATIENT
  Age: 75 Year
  Sex: Male
  Weight: 60 kg

DRUGS (42)
  1. LENVATINIB [Suspect]
     Active Substance: LENVATINIB
     Indication: Renal cell carcinoma
     Route: 048
     Dates: start: 20230502, end: 20230531
  2. LENVATINIB [Suspect]
     Active Substance: LENVATINIB
     Dosage: FREQUENCY UNKNOWN.
     Route: 048
     Dates: start: 20230615, end: 20230901
  3. LENVATINIB [Suspect]
     Active Substance: LENVATINIB
     Dosage: FREQUENCY UNKNOWN.
     Route: 048
     Dates: start: 20230913, end: 20240209
  4. KEYTRUDA [Suspect]
     Active Substance: PEMBROLIZUMAB
     Indication: Renal cell carcinoma
     Route: 042
     Dates: start: 20230502, end: 20240118
  5. NIFEDIPINE [Concomitant]
     Active Substance: NIFEDIPINE
     Indication: Hypertension
     Route: 048
     Dates: start: 20230505, end: 20240324
  6. SYMPROIC [Concomitant]
     Active Substance: NALDEMEDINE TOSYLATE
     Indication: Product used for unknown indication
     Dosage: AFTER BREAKFAST
     Route: 048
     Dates: start: 20230524, end: 20240324
  7. LEVOTHYROXINE [Concomitant]
     Active Substance: LEVOTHYROXINE
     Indication: Product used for unknown indication
     Dosage: AFTER BREAKFAST
     Route: 048
     Dates: start: 20231005, end: 20231108
  8. LEVOTHYROXINE [Concomitant]
     Active Substance: LEVOTHYROXINE
     Dosage: AFTER BREAKFAST
     Route: 048
     Dates: start: 20231109, end: 20240323
  9. LEVOTHYROXINE [Concomitant]
     Active Substance: LEVOTHYROXINE
     Dosage: AFTER BREAKFAST
     Route: 048
     Dates: start: 20231118, end: 20240323
  10. ESOMEPRAZOLE [Concomitant]
     Active Substance: ESOMEPRAZOLE
     Indication: Product used for unknown indication
     Dosage: AFTER BREAKFAST
     Route: 048
     Dates: start: 20230424, end: 20240324
  11. CALCIUM CARBONATE\CHOLECALCIFEROL\MAGNESIUM CARBONATE [Concomitant]
     Active Substance: CALCIUM CARBONATE\CHOLECALCIFEROL\MAGNESIUM CARBONATE
     Indication: Product used for unknown indication
     Dosage: AFTER BREAKFAST
     Route: 048
     Dates: start: 20230727, end: 20240319
  12. MIROGABALIN BESYLATE [Concomitant]
     Active Substance: MIROGABALIN BESYLATE
     Indication: Product used for unknown indication
     Dosage: AFTER BREAKFAST AND DINNER
     Route: 048
     Dates: start: 20230725, end: 20230821
  13. MIROGABALIN BESYLATE [Concomitant]
     Active Substance: MIROGABALIN BESYLATE
     Dosage: AFTER BREAKFAST AND DINNER
     Route: 048
     Dates: start: 20230822, end: 20240324
  14. ZINC [Concomitant]
     Active Substance: ZINC
     Indication: Product used for unknown indication
     Dosage: AFTER BREAKFAST AND DINNER
     Route: 048
     Dates: start: 20230913, end: 20231206
  15. ZINC [Concomitant]
     Active Substance: ZINC
     Dosage: AFTER BREAKFAST AND DINNER
     Route: 048
     Dates: start: 20231207, end: 20240324
  16. OXYCODONE [Concomitant]
     Active Substance: OXYCODONE
     Indication: Product used for unknown indication
     Route: 048
     Dates: start: 20230518, end: 20230523
  17. OXYCODONE [Concomitant]
     Active Substance: OXYCODONE
     Route: 048
     Dates: start: 20230524, end: 20240324
  18. CELECOXIB [Concomitant]
     Active Substance: CELECOXIB
     Indication: Product used for unknown indication
     Dosage: AFTER BREAKFAST AND DINNER
     Route: 048
     Dates: start: 20230424, end: 20240220
  19. MAGNESIUM OXIDE [Concomitant]
     Active Substance: MAGNESIUM OXIDE
     Indication: Product used for unknown indication
     Dosage: AFTER MEALS
     Route: 048
     Dates: start: 20230424, end: 20240324
  20. POLAPREZINC [Concomitant]
     Active Substance: POLAPREZINC
     Indication: Product used for unknown indication
     Dosage: AFTER BREAKFAST AND AT BEDTIME
     Route: 048
     Dates: start: 20230824, end: 20230913
  21. HERBALS [Concomitant]
     Active Substance: HERBALS
     Indication: Product used for unknown indication
     Dosage: BEFORE MEALS
     Route: 048
     Dates: start: 20230824, end: 20230913
  22. LIMAPROST [Concomitant]
     Active Substance: LIMAPROST
     Indication: Product used for unknown indication
     Dosage: AFTER MEALS
     Route: 048
     Dates: start: 20230627, end: 20230724
  23. ELOBIXIBAT [Concomitant]
     Active Substance: ELOBIXIBAT
     Indication: Product used for unknown indication
     Dosage: BEFORE BREAKFAST
     Route: 048
     Dates: start: 20240306, end: 20240324
  24. SULFAMETHOXAZOLE\TRIMETHOPRIM [Concomitant]
     Active Substance: SULFAMETHOXAZOLE\TRIMETHOPRIM
     Indication: Product used for unknown indication
     Dosage: AFTER BREAKFAST
     Route: 048
     Dates: start: 20240209, end: 20240324
  25. HERBALS [Concomitant]
     Active Substance: HERBALS
     Indication: Product used for unknown indication
     Dosage: BEFORE MEALS
     Route: 048
     Dates: start: 20240306, end: 20240324
  26. URSODIOL [Concomitant]
     Active Substance: URSODIOL
     Indication: Product used for unknown indication
     Dosage: AFTER MEALS
     Route: 048
     Dates: start: 20240305, end: 20240319
  27. GLYCYRON [Concomitant]
     Indication: Product used for unknown indication
     Dosage: AFTER MEALS
     Route: 048
     Dates: start: 20240305, end: 20240319
  28. SOLU-MEDROL [Concomitant]
     Active Substance: METHYLPREDNISOLONE SODIUM SUCCINATE
     Indication: Product used for unknown indication
     Dosage: FREQUENCY UNKNOWN
     Route: 042
     Dates: start: 20240322, end: 20240327
  29. SOLU-MEDROL [Concomitant]
     Active Substance: METHYLPREDNISOLONE SODIUM SUCCINATE
     Dosage: FREQUENCY UNKNOWN
     Route: 042
     Dates: start: 20240209, end: 20240211
  30. PREDONINE [Concomitant]
     Active Substance: PREDNISOLONE
     Indication: Product used for unknown indication
     Dosage: FREQUENCY UNKNOWN.
     Route: 042
     Dates: start: 20240212, end: 20240213
  31. PREDNISOLONE [Concomitant]
     Active Substance: PREDNISOLONE
     Indication: Product used for unknown indication
     Dosage: AFTER BREAKFAST
     Route: 048
     Dates: start: 20240219, end: 20240225
  32. PREDNISOLONE [Concomitant]
     Active Substance: PREDNISOLONE
     Dosage: AFTER BREAKFAST
     Route: 048
     Dates: start: 20240226, end: 20240306
  33. PREDNISOLONE [Concomitant]
     Active Substance: PREDNISOLONE
     Dosage: AFTER BREAKFAST
     Route: 048
     Dates: start: 20240309, end: 20240322
  34. PREDNISOLONE [Concomitant]
     Active Substance: PREDNISOLONE
     Dosage: AFTER BREAKFAST
     Route: 048
     Dates: start: 20240214, end: 20240218
  35. PROGRAF [Concomitant]
     Active Substance: TACROLIMUS
     Indication: Product used for unknown indication
     Dosage: AFTER BREAKFAST AND DINNER
     Route: 048
     Dates: start: 20240318, end: 20240324
  36. PROGRAF [Concomitant]
     Active Substance: TACROLIMUS
     Dosage: AFTER BREAKFAST AND DINNER
     Route: 048
     Dates: start: 20240318, end: 20240324
  37. PROGRAF [Concomitant]
     Active Substance: TACROLIMUS
     Dosage: AFTER BREAKFAST AND DINNER
     Route: 048
     Dates: start: 20240313, end: 20240317
  38. CYCLOPHOSPHAMIDE [Concomitant]
     Active Substance: CYCLOPHOSPHAMIDE
     Indication: Product used for unknown indication
     Dosage: FREQUENCY UNKNOWN.
     Route: 042
     Dates: start: 20240309, end: 20240309
  39. MEROPENEM [Concomitant]
     Active Substance: MEROPENEM
     Indication: Product used for unknown indication
     Route: 042
     Dates: start: 20240301, end: 20240310
  40. AMPICILLIN SODIUM\SULBACTAM SODIUM [Concomitant]
     Active Substance: AMPICILLIN SODIUM\SULBACTAM SODIUM
     Indication: Product used for unknown indication
     Route: 042
     Dates: start: 20240322, end: 20240325
  41. MORPHINE HYDROCHLORIDE [Concomitant]
     Active Substance: MORPHINE HYDROCHLORIDE
     Indication: Product used for unknown indication
     Route: 042
     Dates: start: 20240322, end: 20240327
  42. BISOPROLOL [Concomitant]
     Active Substance: BISOPROLOL
     Indication: Product used for unknown indication
     Route: 062
     Dates: start: 20240324, end: 20240326

REACTIONS (1)
  - Interstitial lung disease [Fatal]

NARRATIVE: CASE EVENT DATE: 20240118
